FAERS Safety Report 5221315-3 (Version None)
Quarter: 2006Q4

REPORT INFORMATION
  Report Type: 
  Country: None (occurrence: None)
  Receive Date: 20061201
  Receipt Date: 20060709
  Transmission Date: 20070319
  Serious: No
  Sender: FDA-Public Use
  Company Number: 2006PV017159

PATIENT
  Age: 54 Year
  Sex: Female
  Weight: 64.4108 kg

DRUGS (3)
  1. BYETTA [Suspect]
     Indication: DIABETES MELLITUS NON-INSULIN-DEPENDENT
     Dosage: 10 MCG;BID;SC
     Route: 058
     Dates: start: 20060101
  2. METFORMIN HCL [Concomitant]
  3. AMARYL [Concomitant]

REACTIONS (1)
  - BLOOD GLUCOSE INCREASED [None]
